FAERS Safety Report 25737821 (Version 1)
Quarter: 2025Q3

REPORT INFORMATION
  Report Type: Spontaneous
  Country: US (occurrence: US)
  Receive Date: 20250828
  Receipt Date: 20250828
  Transmission Date: 20251020
  Serious: No
  Sender: COLLEGIUM PHARMACEUTICAL
  Company Number: US-COLLEGIUM PHARMACEUTICAL, INC.-20250502064

PATIENT
  Age: 7 Year
  Sex: Male
  Weight: 18.141 kg

DRUGS (1)
  1. JORNAY PM EXTENDED-RELEASE [Suspect]
     Active Substance: METHYLPHENIDATE HYDROCHLORIDE
     Indication: Product used for unknown indication
     Route: 065

REACTIONS (4)
  - Swelling face [Unknown]
  - Eye swelling [Unknown]
  - Nasal oedema [Unknown]
  - Erythema [Unknown]
